FAERS Safety Report 18859290 (Version 1)
Quarter: 2021Q1

REPORT INFORMATION
  Report Type: Spontaneous
  Country: US (occurrence: US)
  Receive Date: 20210207
  Receipt Date: 20210207
  Transmission Date: 20210420
  Serious: Yes (Disabling, Congenital Anomaly)
  Sender: FDA-Public Use
  Company Number: None

PATIENT
  Sex: Female
  Weight: 68.04 kg

DRUGS (1)
  1. MIRENA [Suspect]
     Active Substance: LEVONORGESTREL
     Dates: start: 20141114, end: 20190724

REACTIONS (5)
  - Infertility [None]
  - Abortion spontaneous [None]
  - Uterine disorder [None]
  - Progesterone decreased [None]
  - Pregnancy [None]
